FAERS Safety Report 6865925-6 (Version None)
Quarter: 2010Q3

REPORT INFORMATION
  Report Type: 
  Country: None (occurrence: None)
  Receive Date: 20100719
  Receipt Date: 20100628
  Transmission Date: 20110219
  Serious: Yes (Death)
  Sender: FDA-Public Use
  Company Number: 1000015117

PATIENT
  Age: 78 Year
  Sex: Female

DRUGS (6)
  1. MEMANTINE HCL [Suspect]
     Indication: DEMENTIA
     Dosage: 10 MG (10 MG,1 IN 1 ), ORAL
     Route: 048
     Dates: start: 20090817, end: 20100101
  2. DONEPEZIL HCL [Concomitant]
  3. NICERGOLINE [Concomitant]
  4. TRIMETAZIDINE (TABLETS) [Concomitant]
  5. CARVEDILOL [Concomitant]
  6. CAPTOPRIL  ACETYLSALICYLIC ACID [Concomitant]

REACTIONS (1)
  - CARDIAC ARREST [None]
